FAERS Safety Report 8098305 (Version 4)
Quarter: 2013Q4

REPORT INFORMATION
  Report Type: Spontaneous
  Country: US (occurrence: US)
  Receive Date: 20110819
  Receipt Date: 20131115
  Transmission Date: 20140711
  Serious: Yes (Hospitalization)
  Sender: FDA-Public Use
  Company Number: US-GLAXOSMITHKLINE-A0915703A

PATIENT
  Age: 73 Year
  Sex: Male
  Weight: 106.4 kg

DRUGS (1)
  1. ROSIGLITAZONE MALEATE [Suspect]
     Indication: DIABETES MELLITUS
     Dosage: 8MG PER DAY
     Route: 048
     Dates: start: 20070309, end: 201007

REACTIONS (13)
  - Cerebrovascular accident [Unknown]
  - Cardiovascular disorder [Unknown]
  - Arrhythmia [Unknown]
  - Atrial fibrillation [Unknown]
  - Hypertension [Unknown]
  - Arteriosclerosis [Unknown]
  - Oedema [Unknown]
  - Arterial therapeutic procedure [Unknown]
  - Electrocardiogram abnormal [Unknown]
  - Chest pain [Unknown]
  - Dyspnoea [Unknown]
  - Gait disturbance [Unknown]
  - Coronary artery disease [Unknown]
